FAERS Safety Report 4399203-4 (Version None)
Quarter: 2004Q3

REPORT INFORMATION
  Report Type: 
  Country: None (occurrence: None)
  Receive Date: 20040716
  Receipt Date: 20040707
  Transmission Date: 20050211
  Serious: Yes (Hospitalization, Other)
  Sender: FDA-Public Use
  Company Number: US-BRISTOL-MYERS SQUIBB COMPANY-12633764

PATIENT
  Age: 65 Year
  Sex: Male
  Weight: 93 kg

DRUGS (2)
  1. CARBOPLATIN [Suspect]
     Indication: NON-SMALL CELL LUNG CANCER
     Dosage: DOSE = AUC 5.5--THEN 4.2 1ST DOSE - 24AUG00
     Route: 042
     Dates: start: 20000914, end: 20000914
  2. GEMZAR [Suspect]
     Indication: NON-SMALL CELL LUNG CANCER
     Dosage: GIVEN ON DAYS 1+8 1ST DOSE - 24AUG00
     Route: 042
     Dates: start: 20000921, end: 20000921

REACTIONS (10)
  - ANOREXIA [None]
  - BODY TEMPERATURE INCREASED [None]
  - HYPOTENSION [None]
  - NAUSEA [None]
  - NEUTROPENIA [None]
  - OESOPHAGITIS [None]
  - PLATELET COUNT DECREASED [None]
  - RECTAL HAEMORRHAGE [None]
  - VOMITING [None]
  - WHITE BLOOD CELL COUNT DECREASED [None]
